FAERS Safety Report 4700096-3 (Version None)
Quarter: 2005Q2

REPORT INFORMATION
  Report Type: 
  Country: None (occurrence: None)
  Receive Date: 20050623
  Receipt Date: 20050614
  Transmission Date: 20051028
  Serious: Yes (Other)
  Sender: FDA-Public Use
  Company Number: 2005-06-1120

PATIENT
  Sex: Male

DRUGS (1)
  1. CLARINEX [Suspect]
     Dosage: ORAL
     Route: 048
     Dates: start: 20010101

REACTIONS (1)
  - HEART RATE IRREGULAR [None]
